FAERS Safety Report 11995681 (Version 1)
Quarter: 2016Q1

REPORT INFORMATION
  Report Type: Spontaneous
  Country: US (occurrence: US)
  Receive Date: 20160203
  Receipt Date: 20160203
  Transmission Date: 20160526
  Serious: Yes (Other)
  Sender: FDA-Public Use
  Company Number: US-BAYER-2015-477158

PATIENT
  Age: 73 Year
  Sex: Female
  Weight: 71.66 kg

DRUGS (2)
  1. AFRIN NO DRIP SINUS PUMP MIST [Suspect]
     Active Substance: OXYMETAZOLINE HYDROCHLORIDE
     Indication: NASOPHARYNGITIS
     Dosage: 1 DF, 1 DF, 2 OR 3 TIMES AS NEEDED
     Route: 045
     Dates: start: 201511
  2. AFRIN SEVERE CONGESTION [Suspect]
     Active Substance: OXYMETAZOLINE HYDROCHLORIDE
     Indication: NASOPHARYNGITIS
     Dosage: 1 DF, 2 OR 3 TIMES DAILY
     Route: 045
     Dates: start: 1985

REACTIONS (7)
  - Nasal congestion [None]
  - Product use issue [None]
  - Drug dependence [Not Recovered/Not Resolved]
  - Incorrect drug administration duration [None]
  - Inappropriate schedule of drug administration [None]
  - Device malfunction [None]
  - Drug withdrawal syndrome [None]
